FAERS Safety Report 5440495-8 (Version None)
Quarter: 2007Q3

REPORT INFORMATION
  Report Type: 
  Country: None (occurrence: None)
  Receive Date: 20070831
  Receipt Date: 20070827
  Transmission Date: 20080115
  Serious: Yes (Death, Other)
  Sender: FDA-Public Use
  Company Number: US-AMGEN-US225845

PATIENT
  Sex: Female
  Weight: 52.7 kg

DRUGS (4)
  1. PROCRIT [Suspect]
     Indication: RENAL FAILURE CHRONIC
     Dates: start: 20070207, end: 20070504
  2. TAMOXIFEN CITRATE [Concomitant]
  3. SYNTHROID [Concomitant]
     Route: 048
     Dates: start: 20060913
  4. LASIX [Concomitant]
     Route: 048
     Dates: start: 20061115

REACTIONS (3)
  - CEREBRAL HAEMORRHAGE [None]
  - FALL [None]
  - METASTASES TO CENTRAL NERVOUS SYSTEM [None]
